FAERS Safety Report 7275238-9 (Version None)
Quarter: 2011Q1

REPORT INFORMATION
  Report Type: 
  Country: None (occurrence: None)
  Receive Date: 20110204
  Receipt Date: 20110131
  Transmission Date: 20110831
  Serious: Yes (Death, Other)
  Sender: FDA-Public Use
  Company Number: PHHY2010CA28029

PATIENT
  Sex: Female

DRUGS (1)
  1. ACLASTA [Suspect]
     Indication: OSTEOPOROSIS
     Dosage: 5 MG
     Route: 042
     Dates: start: 20100422

REACTIONS (5)
  - SYSTEMIC LUPUS ERYTHEMATOSUS [None]
  - MYALGIA [None]
  - PYREXIA [None]
  - NAUSEA [None]
  - DEATH [None]
